FAERS Safety Report 13655972 (Version 1)
Quarter: 2017Q2

REPORT INFORMATION
  Report Type: Spontaneous
  Country: RU (occurrence: RU)
  Receive Date: 20170615
  Receipt Date: 20170615
  Transmission Date: 20170830
  Serious: Yes (Life-Threatening, Hospitalization)
  Sender: FDA-Public Use
  Company Number: RU-ASTRAZENECA-2017SE55110

PATIENT
  Age: 64 Year
  Sex: Female
  Weight: 71 kg

DRUGS (4)
  1. LORISTA [Concomitant]
     Active Substance: LOSARTAN POTASSIUM
  2. KETOROL [Concomitant]
     Active Substance: KETOROLAC TROMETHAMINE
  3. TRAMADOL. [Concomitant]
     Active Substance: TRAMADOL
  4. BRILINTA [Suspect]
     Active Substance: TICAGRELOR
     Indication: MYOCARDIAL INFARCTION
     Route: 048
     Dates: start: 20170119

REACTIONS (3)
  - Blood pressure decreased [Not Recovered/Not Resolved]
  - Myocardial infarction [Not Recovered/Not Resolved]
  - Chest pain [Not Recovered/Not Resolved]

NARRATIVE: CASE EVENT DATE: 20170119
